FAERS Safety Report 8560795-2 (Version None)
Quarter: 2012Q3

REPORT INFORMATION
  Report Type: 
  Country: None (occurrence: None)
  Receive Date: 20120802
  Receipt Date: 20120724
  Transmission Date: 20120928
  Serious: Yes (Other)
  Sender: FDA-Public Use
  Company Number: US-ASTRAZENECA-2012SE47558

PATIENT
  Age: 59 Year
  Sex: Male

DRUGS (11)
  1. NEXIUM [Suspect]
     Route: 048
  2. FAMITIDINE [Concomitant]
  3. TESSALON [Concomitant]
  4. CALCIUM WITH D VITAMIN [Concomitant]
  5. PSEUDOPHEDRINE [Concomitant]
  6. NORVASC [Concomitant]
  7. LYRICA [Concomitant]
  8. NIACIN [Concomitant]
  9. TRAMADOL HCL [Concomitant]
  10. ASPIRIN [Concomitant]
  11. PEPCID [Concomitant]

REACTIONS (8)
  - OEDEMA PERIPHERAL [None]
  - MASS [None]
  - THERAPEUTIC RESPONSE UNEXPECTED [None]
  - ADVERSE EVENT [None]
  - HYPERSOMNIA [None]
  - COUGH [None]
  - RENAL FAILURE [None]
  - POLYARTHRITIS [None]
